FAERS Safety Report 7791365-1 (Version None)
Quarter: 2011Q4

REPORT INFORMATION
  Report Type: 
  Country: None (occurrence: None)
  Receive Date: 20111003
  Receipt Date: 20110919
  Transmission Date: 20120403
  Serious: Yes (Other)
  Sender: FDA-Public Use
  Company Number: CA-ELI_LILLY_AND_COMPANY-CA201106006663

PATIENT
  Age: 50 Year
  Sex: Male
  Weight: 77.098 kg

DRUGS (6)
  1. FORTEO [Suspect]
     Indication: OSTEOPOROSIS
     Dosage: 20 UG, QD
     Route: 058
     Dates: start: 20110325
  2. CALCIUM MAGNESIUM [Concomitant]
  3. VITAMIN D [Concomitant]
     Dosage: 2000 IU, QD
  4. OMEGA 3-6-9 [Concomitant]
  5. CALCIUM CARBONATE [Concomitant]
     Dosage: 1000 MG, QD
  6. VITAMIN B-12 [Concomitant]
     Dosage: 500 UG, 3/W

REACTIONS (1)
  - BLOOD CREATINE PHOSPHOKINASE INCREASED [None]
